FAERS Safety Report 5473986-4 (Version None)
Quarter: 2007Q3

REPORT INFORMATION
  Report Type: 
  Country: None (occurrence: None)
  Receive Date: 20070830
  Receipt Date: 20070516
  Transmission Date: 20080115
  Serious: Yes (Death, Life-Threatening, Hospitalization, Disabling)
  Sender: FDA-Public Use
  Company Number: 237605

PATIENT
  Age: 69 Year
  Sex: Male
  Weight: 73.9 kg

DRUGS (6)
  1. XOLAIR [Suspect]
     Indication: ASTHMA
     Dosage: 225 MG, Q2W, INTRAVENOUS
     Route: 042
     Dates: start: 20050815
  2. XOLAIR [Suspect]
     Indication: HYPERSENSITIVITY
     Dosage: 225 MG, Q2W, INTRAVENOUS
     Route: 042
     Dates: start: 20050815
  3. SINGULAIR [Concomitant]
  4. FORADIL [Concomitant]
  5. ALBUTEROL (ALBUTEROL/ALBUTEROL SULFATE) [Concomitant]
  6. PREDNISONE TAB [Concomitant]

REACTIONS (1)
  - BRONCHIAL CARCINOMA [None]
